FAERS Safety Report 6929981-9 (Version None)
Quarter: 2010Q3

REPORT INFORMATION
  Report Type: 
  Country: None (occurrence: None)
  Receive Date: 20100817
  Receipt Date: 20100817
  Transmission Date: 20110219
  Serious: Yes (Other)
  Sender: FDA-Public Use
  Company Number: None

PATIENT
  Age: 78 Year
  Sex: Female
  Weight: 61.2356 kg

DRUGS (4)
  1. ACULAR [Suspect]
     Indication: CYST
     Dosage: ONE DROP 4 TIMES DAILY
     Dates: start: 20100101, end: 20100601
  2. ACULAR [Suspect]
     Indication: INFLAMMATION
     Dosage: ONE DROP 4 TIMES DAILY
     Dates: start: 20100101, end: 20100601
  3. KETOROLAC TROMETHAMINE [Suspect]
     Dosage: ONE DROP 4 TIMES DAILY
     Dates: start: 20100319
  4. KETOROLAC TROMETHAMINE [Suspect]
     Dosage: ONE DROP 4 TIMES DAILY
     Dates: start: 20100320

REACTIONS (13)
  - BLOOD PRESSURE SYSTOLIC INCREASED [None]
  - CYST [None]
  - EXPIRED DRUG ADMINISTERED [None]
  - EYE DISORDER [None]
  - EYE INFLAMMATION [None]
  - EYE PAIN [None]
  - EYE SWELLING [None]
  - HEADACHE [None]
  - OCULAR HYPERAEMIA [None]
  - RASH [None]
  - VISION BLURRED [None]
  - VISUAL ACUITY REDUCED [None]
  - VISUAL IMPAIRMENT [None]
